FAERS Safety Report 20408347 (Version 1)
Quarter: 2022Q1

REPORT INFORMATION
  Report Type: Spontaneous
  Country: JP (occurrence: JP)
  Receive Date: 20220201
  Receipt Date: 20220201
  Transmission Date: 20220423
  Serious: Yes (Life-Threatening, Hospitalization, Other)
  Sender: FDA-Public Use
  Company Number: JP-Reliance-000294

PATIENT
  Age: 76 Year
  Sex: Female

DRUGS (1)
  1. CAPECITABINE [Suspect]
     Active Substance: CAPECITABINE
     Indication: Colon cancer

REACTIONS (4)
  - Leukopenia [Unknown]
  - Stomatitis [Unknown]
  - Diarrhoea [Unknown]
  - Disseminated intravascular coagulation [Recovering/Resolving]
